FAERS Safety Report 6197367-3 (Version None)
Quarter: 2009Q2

REPORT INFORMATION
  Report Type: 
  Country: None (occurrence: None)
  Receive Date: 20090521
  Receipt Date: 20090515
  Transmission Date: 20091009
  Serious: Yes (Other)
  Sender: FDA-Public Use
  Company Number: US-ASTRAZENECA-2009UW12531

PATIENT
  Sex: Male

DRUGS (1)
  1. SEROQUEL [Suspect]
     Indication: INSOMNIA
     Route: 048

REACTIONS (5)
  - ABNORMAL DREAMS [None]
  - DRUG ABUSE [None]
  - HYPERSOMNIA [None]
  - INSOMNIA [None]
  - WITHDRAWAL SYNDROME [None]
